FAERS Safety Report 6819232-8 (Version None)
Quarter: 2010Q3

REPORT INFORMATION
  Report Type: 
  Country: None (occurrence: None)
  Receive Date: 20100707
  Receipt Date: 20100330
  Transmission Date: 20110219
  Serious: Yes (Other)
  Sender: FDA-Public Use
  Company Number: US-ASTRAZENECA-2006UW05814

PATIENT
  Age: 549 Month
  Sex: Female
  Weight: 118.8 kg

DRUGS (12)
  1. SEROQUEL [Suspect]
     Indication: DEPRESSION
     Dosage: 100 MG- 200 MG
     Route: 048
     Dates: start: 20030201
  2. SEROQUEL [Suspect]
     Indication: SCHIZOPHRENIA
     Dosage: 100 MG- 200 MG
     Route: 048
     Dates: start: 20030201
  3. SEROQUEL [Suspect]
     Route: 048
     Dates: start: 20040210
  4. SEROQUEL [Suspect]
     Route: 048
     Dates: start: 20040210
  5. SEROQUEL [Suspect]
     Route: 048
     Dates: start: 20051011, end: 20060201
  6. SEROQUEL [Suspect]
     Route: 048
     Dates: start: 20051011, end: 20060201
  7. LEXAPRO [Concomitant]
     Route: 048
     Dates: start: 20040106
  8. LEXAPRO [Concomitant]
     Route: 048
     Dates: start: 20051011, end: 20060201
  9. TRAZODONE HCL [Concomitant]
     Dates: start: 20040104
  10. HYDROCHLOROTHIAZIDE [Concomitant]
     Dates: start: 20040107
  11. LISINOPRIL [Concomitant]
     Dates: start: 20040107
  12. ALBUTEROL [Concomitant]
     Dates: start: 20040107

REACTIONS (3)
  - DIABETES MELLITUS [None]
  - NEUROPATHY PERIPHERAL [None]
  - TYPE 2 DIABETES MELLITUS [None]
